FAERS Safety Report 23306150 (Version 1)
Quarter: 2023Q4

REPORT INFORMATION
  Report Type: Spontaneous
  Country: CN (occurrence: CN)
  Receive Date: 20231218
  Receipt Date: 20231218
  Transmission Date: 20240110
  Serious: Yes (Hospitalization)
  Sender: FDA-Public Use
  Company Number: CN-ABBVIE-5538100

PATIENT
  Age: 69 Year
  Sex: Male

DRUGS (3)
  1. VENETOCLAX [Suspect]
     Active Substance: VENETOCLAX
     Indication: Neoplasm malignant
     Dosage: 400 MILLIGRAM?DURATION TEXT: DAY 1-28
     Route: 048
     Dates: start: 20231010, end: 20231016
  2. AZACITIDINE [Suspect]
     Active Substance: AZACITIDINE
     Indication: Neoplasm malignant
     Dosage: 115 MILLIGRAM
     Route: 058
     Dates: start: 20231010, end: 20231016
  3. STERILE WATER [Concomitant]
     Active Substance: WATER
     Indication: Neoplasm malignant
     Dosage: 6 ML
     Route: 058
     Dates: start: 20231010, end: 20231016

REACTIONS (1)
  - Myelosuppression [Recovering/Resolving]

NARRATIVE: CASE EVENT DATE: 20231023
